FAERS Safety Report 4356275-0 (Version None)
Quarter: 2004Q2

REPORT INFORMATION
  Report Type: 
  Country: None (occurrence: None)
  Receive Date: 20040510
  Receipt Date: 20040510
  Transmission Date: 20050107
  Serious: Yes (Hospitalization)
  Sender: FDA-Public Use
  Company Number: None

PATIENT
  Age: 67 Year
  Sex: Male
  Weight: 83 kg

DRUGS (14)
  1. WARFARIN SODIUM [Suspect]
     Indication: ATRIAL FIBRILLATION
     Dosage: 5 MG, 5 MG PO, ORAL
     Route: 048
  2. FERROUS SULFATE TAB [Concomitant]
  3. BARIUM ENEMA KIT [Concomitant]
  4. MAGNESIUM CITRATE [Concomitant]
  5. FLEET RECTAROID ENEMA [Concomitant]
  6. TRIAMCINOLONE [Concomitant]
  7. ENOXAPARIN SODIUM [Concomitant]
  8. LUBRICATING EYE DROPS [Concomitant]
  9. ASPIRIN [Concomitant]
  10. RANITIDINE [Concomitant]
  11. NIACIN [Concomitant]
  12. SIMVASTATIN [Concomitant]
  13. METOPROLOL [Concomitant]
  14. HYDROXYZINE [Concomitant]

REACTIONS (3)
  - EPISTAXIS [None]
  - HAEMATURIA [None]
  - RECTAL HAEMORRHAGE [None]
